FAERS Safety Report 9987679 (Version 1)
Quarter: 2014Q1

REPORT INFORMATION
  Report Type: Spontaneous
  Country: FR (occurrence: FR)
  Receive Date: 20140307
  Receipt Date: 20140307
  Transmission Date: 20141002
  Serious: Yes (Other)
  Sender: FDA-Public Use
  Company Number: FR-BAXTER-2014BAX010475

PATIENT
  Age: 60 Year
  Sex: Male

DRUGS (3)
  1. HOLOXAN 2000 MG, POUDRE POUR USAGE PARENT?RAL [Suspect]
     Indication: MANTLE CELL LYMPHOMA
     Route: 065
  2. BENDAMUSTIN [Concomitant]
     Indication: MANTLE CELL LYMPHOMA
     Route: 065
  3. RITUXIMAB [Concomitant]
     Indication: MANTLE CELL LYMPHOMA
     Route: 065

REACTIONS (1)
  - Wrong drug administered [Recovered/Resolved]
